FAERS Safety Report 11396747 (Version 1)
Quarter: 2015Q3

REPORT INFORMATION
  Report Type: Spontaneous
  Country: US (occurrence: US)
  Receive Date: 20150819
  Receipt Date: 20150819
  Transmission Date: 20151125
  Serious: No
  Sender: FDA-Public Use
  Company Number: US-LPDUSPRD-20150495

PATIENT
  Sex: Male

DRUGS (9)
  1. HYDRALAZINE [Concomitant]
     Active Substance: HYDRALAZINE HYDROCHLORIDE
     Dosage: DOSE NOT PROVIDED
     Route: 048
  2. LASIX [Concomitant]
     Active Substance: FUROSEMIDE
     Dosage: DOSE NOT PROVIDED
     Route: 048
  3. HYDROXYZINE [Concomitant]
     Active Substance: HYDROXYZINE\HYDROXYZINE HYDROCHLORIDE
     Dosage: DOSE NOT PROVIDED
     Route: 048
  4. SODIUM BICARBONATE. [Concomitant]
     Active Substance: SODIUM BICARBONATE
     Dosage: DOSE NOT PROVIDED
     Route: 048
  5. PREDNISONE. [Concomitant]
     Active Substance: PREDNISONE
     Dosage: DOSE NOT PROVIDED
     Route: 048
  6. CALCITROL [Concomitant]
     Active Substance: CALCITRIOL
     Dosage: DOSE NOT PROVIDED
     Route: 048
  7. METROPROLOL [Concomitant]
     Active Substance: METOPROLOL
     Dosage: DOSE NOT PROVIDED
     Route: 048
  8. INJECTAFER [Suspect]
     Active Substance: FERRIC CARBOXYMALTOSE
     Dosage: 2 DOSE, 750MG, WEEK APART
     Route: 042
     Dates: start: 20150618, end: 20150625
  9. PROCARDIA [Concomitant]
     Active Substance: NIFEDIPINE
     Dosage: DOSE NOT PROVIDED
     Route: 048

REACTIONS (1)
  - Nausea [Recovered/Resolved]

NARRATIVE: CASE EVENT DATE: 20150625
